FAERS Safety Report 5921814-2 (Version None)
Quarter: 2008Q4

REPORT INFORMATION
  Report Type: 
  Country: None (occurrence: None)
  Receive Date: 20081010
  Receipt Date: 20080929
  Transmission Date: 20090506
  Serious: Yes (Death, Hospitalization)
  Sender: FDA-Public Use
  Company Number: 200813858

PATIENT
  Age: 59 Year
  Sex: Male

DRUGS (15)
  1. ALBUMINAR-5 [Suspect]
     Indication: HYPOALBUMINAEMIA
     Dosage: IV
     Route: 042
     Dates: start: 20080515
  2. ALBUMINAR-5 [Suspect]
     Dosage: 250 ML ONCE IV
     Route: 042
     Dates: start: 20080710, end: 20080710
  3. ALBUMINAR-5 [Suspect]
     Indication: HYPOALBUMINAEMIA
     Dosage: 250 ML ONCE IV
     Route: 042
     Dates: start: 20080711, end: 20080711
  4. ROCEPHIN [Concomitant]
  5. LANSOPRAZOLE [Concomitant]
  6. ORGARAN [Concomitant]
  7. RED BLOOD CELLS [Concomitant]
  8. FRESH FROZEN PLASMA [Concomitant]
  9. PLATELETS [Concomitant]
  10. URINORM [Concomitant]
  11. URSO 250 [Concomitant]
  12. GABALON [Concomitant]
  13. LASIX [Concomitant]
  14. PREDNISOLONE [Concomitant]
  15. IMURAN/00001501/ [Concomitant]

REACTIONS (16)
  - ALANINE AMINOTRANSFERASE INCREASED [None]
  - ANAPHYLACTIC REACTION [None]
  - ASPARTATE AMINOTRANSFERASE INCREASED [None]
  - BLOOD ALKALINE PHOSPHATASE INCREASED [None]
  - BLOOD BILIRUBIN INCREASED [None]
  - BLOOD CREATININE INCREASED [None]
  - BLOOD LACTATE DEHYDROGENASE INCREASED [None]
  - BLOOD UREA INCREASED [None]
  - DISSEMINATED INTRAVASCULAR COAGULATION [None]
  - DRUG ERUPTION [None]
  - HAEMOGLOBIN DECREASED [None]
  - INFUSION RELATED REACTION [None]
  - PLATELET COUNT DECREASED [None]
  - PNEUMONIA [None]
  - RASH [None]
  - SEPSIS [None]
